FAERS Safety Report 7402414-4 (Version None)
Quarter: 2011Q2

REPORT INFORMATION
  Report Type: 
  Country: None (occurrence: None)
  Receive Date: 20110401
  Receipt Date: 20110325
  Transmission Date: 20111010
  Serious: Yes (Hospitalization, Other)
  Sender: FDA-Public Use
  Company Number: 2010SP004575

PATIENT
  Age: 25 Year
  Sex: Female
  Weight: 104.3273 kg

DRUGS (1)
  1. NUVARING [Suspect]
     Indication: CONTRACEPTION
     Dates: start: 20080901, end: 20081001

REACTIONS (5)
  - PULMONARY EMBOLISM [None]
  - DEPRESSION [None]
  - DEEP VEIN THROMBOSIS [None]
  - INJECTION SITE PAIN [None]
  - INJECTION SITE ANAESTHESIA [None]
